FAERS Safety Report 8993254 (Version 2)
Quarter: 2013Q1

REPORT INFORMATION
  Report Type: Spontaneous
  Country: US (occurrence: US)
  Receive Date: 20130102
  Receipt Date: 20130118
  Transmission Date: 20140127
  Serious: Yes (Other)
  Sender: FDA-Public Use
  Company Number: US-PFIZER INC-2012333096

PATIENT
  Age: 49 Year
  Sex: Female
  Weight: 68.03 kg

DRUGS (2)
  1. PREMARIN [Suspect]
     Indication: HORMONE REPLACEMENT THERAPY
     Dosage: UNK, 1X/DAY
     Route: 048
  2. TOPROL [Concomitant]
     Indication: HYPERTENSION
     Dosage: 200 MG, 2X/DAY

REACTIONS (1)
  - Cerebrovascular accident [Unknown]
